FAERS Safety Report 5385981-4 (Version None)
Quarter: 2007Q3

REPORT INFORMATION
  Report Type: 
  Country: None (occurrence: None)
  Receive Date: 20070709
  Receipt Date: 20070626
  Transmission Date: 20080115
  Serious: Yes (Hospitalization)
  Sender: FDA-Public Use
  Company Number: FSC_00105_2007

PATIENT
  Sex: Female
  Weight: 55 kg

DRUGS (6)
  1. ISOPTIN [Suspect]
     Indication: ARRHYTHMIA
     Dosage: (120 MG BID ORAL), (80 MG QD ORAL)
     Route: 048
     Dates: start: 20020101, end: 20070404
  2. ISOPTIN [Suspect]
     Indication: ARRHYTHMIA
     Dosage: (120 MG BID ORAL), (80 MG QD ORAL)
     Route: 048
     Dates: start: 20020101, end: 20070404
  3. RYTHMOL [Suspect]
     Indication: ARRHYTHMIA
     Dates: start: 20070404
  4. GLIMEPIRIDE [Concomitant]
  5. METFORMIN HYDROCHLORIDE [Concomitant]
  6. CHLORTHALIDONE [Concomitant]

REACTIONS (15)
  - ABDOMINAL PAIN [None]
  - CARDIO-RESPIRATORY ARREST [None]
  - DIARRHOEA [None]
  - DIZZINESS [None]
  - DRY MOUTH [None]
  - DYSGEUSIA [None]
  - FATIGUE [None]
  - HYPERHIDROSIS [None]
  - MICTURITION FREQUENCY DECREASED [None]
  - OEDEMA PERIPHERAL [None]
  - PAIN IN EXTREMITY [None]
  - PHARYNGOLARYNGEAL PAIN [None]
  - PYREXIA [None]
  - URTICARIA [None]
  - VISION BLURRED [None]
